FAERS Safety Report 6602751-7 (Version None)
Quarter: 2010Q1

REPORT INFORMATION
  Report Type: 
  Country: None (occurrence: None)
  Receive Date: 20100225
  Receipt Date: 20090318
  Transmission Date: 20100710
  Serious: No
  Sender: FDA-Public Use
  Company Number: US-BAUSCH-2009BL001229

PATIENT
  Age: 48 Year
  Sex: Male

DRUGS (2)
  1. DESMOPRESSIN ACETATE [Suspect]
     Indication: DRUG USE FOR UNKNOWN INDICATION
     Route: 045
     Dates: start: 20090306, end: 20090317
  2. DESMOPRESSIN ACETATE [Suspect]
     Route: 045
     Dates: start: 20071001, end: 20090305

REACTIONS (1)
  - DRUG INEFFECTIVE [None]
